FAERS Safety Report 13333552 (Version 1)
Quarter: 2017Q1

REPORT INFORMATION
  Report Type: Spontaneous
  Country: US (occurrence: US)
  Receive Date: 20170314
  Receipt Date: 20170314
  Transmission Date: 20170428
  Serious: No
  Sender: FDA-Public Use
  Company Number: US-TEVA-721601USA

PATIENT
  Sex: Male

DRUGS (8)
  1. METHADONE [Concomitant]
     Active Substance: METHADONE HYDROCHLORIDE
  2. MORPHINE [Suspect]
     Active Substance: MORPHINE
     Dosage: 90 MILLIGRAM DAILY;
  3. FENTANYL. [Concomitant]
     Active Substance: FENTANYL
  4. PERCODAN [Concomitant]
     Active Substance: ASPIRIN\OXYCODONE HYDROCHLORIDE
  5. MORPHINE [Suspect]
     Active Substance: MORPHINE
     Indication: PAIN
     Dosage: 30 MILLIGRAM DAILY;
  6. MS CONTIN [Concomitant]
     Active Substance: MORPHINE SULFATE
  7. KADIAN [Concomitant]
     Active Substance: MORPHINE SULFATE
  8. MORPHINE [Suspect]
     Active Substance: MORPHINE
     Dosage: 60 MILLIGRAM DAILY;

REACTIONS (2)
  - Vomiting [Unknown]
  - Pain [Unknown]
